FAERS Safety Report 10654205 (Version 2)
Quarter: 2015Q1

REPORT INFORMATION
  Report Type: Spontaneous
  Country: US (occurrence: US)
  Receive Date: 20141216
  Receipt Date: 20150204
  Transmission Date: 20150720
  Serious: Yes (Death)
  Sender: FDA-Public Use
  Company Number: US-UCBSA-2014021139

PATIENT
  Sex: Male

DRUGS (1)
  1. KEPPRA XR [Suspect]
     Active Substance: LEVETIRACETAM
     Indication: SEIZURE
     Dosage: 500 MG/2 DAY
     Dates: end: 20111016

REACTIONS (2)
  - Throat cancer [Unknown]
  - Lung neoplasm malignant [Fatal]
